FAERS Safety Report 26210716 (Version 1)
Quarter: 2025Q4

REPORT INFORMATION
  Report Type: Spontaneous
  Country: CN (occurrence: CN)
  Receive Date: 20251230
  Receipt Date: 20251230
  Transmission Date: 20260118
  Serious: Yes (Other)
  Sender: STRIDES
  Company Number: CN-STRIDES ARCOLAB LIMITED-2025SP016163

PATIENT
  Age: 70 Year
  Sex: Male

DRUGS (12)
  1. TACROLIMUS [Suspect]
     Active Substance: TACROLIMUS
     Indication: Aplasia pure red cell
     Dosage: UNK
     Route: 065
  2. TACROLIMUS [Suspect]
     Active Substance: TACROLIMUS
     Indication: Large granular lymphocytosis
  3. PREDNISOLONE [Suspect]
     Active Substance: PREDNISOLONE
     Indication: Aplasia pure red cell
     Dosage: UNK
     Route: 065
  4. PREDNISOLONE [Suspect]
     Active Substance: PREDNISOLONE
     Indication: Large granular lymphocytosis
  5. CYCLOSPORINE [Suspect]
     Active Substance: CYCLOSPORINE
     Indication: Aplasia pure red cell
     Dosage: UNK
     Route: 065
  6. CYCLOSPORINE [Suspect]
     Active Substance: CYCLOSPORINE
     Indication: Large granular lymphocytosis
  7. CYCLOPHOSPHAMIDE [Suspect]
     Active Substance: CYCLOPHOSPHAMIDE
     Indication: Aplasia pure red cell
     Dosage: UNK
     Route: 065
  8. CYCLOPHOSPHAMIDE [Suspect]
     Active Substance: CYCLOPHOSPHAMIDE
     Indication: Large granular lymphocytosis
  9. SIROLIMUS [Concomitant]
     Active Substance: SIROLIMUS
     Indication: Aplasia pure red cell
     Dosage: UNK
     Route: 065
  10. SIROLIMUS [Concomitant]
     Active Substance: SIROLIMUS
     Indication: Large granular lymphocytosis
  11. LINPERLISIB [Concomitant]
     Active Substance: LINPERLISIB
     Indication: Aplasia pure red cell
     Dosage: 20 MILLIGRAM, QD
     Route: 065
  12. ENTECAVIR [Concomitant]
     Active Substance: ENTECAVIR
     Indication: Hepatitis B reactivation
     Dosage: UNK
     Route: 065

REACTIONS (4)
  - Nephropathy toxic [Unknown]
  - Renal failure [Unknown]
  - Therapy non-responder [Unknown]
  - Off label use [Unknown]
